FAERS Safety Report 7819790-0 (Version None)
Quarter: 2011Q4

REPORT INFORMATION
  Report Type: 
  Country: None (occurrence: None)
  Receive Date: 20111018
  Receipt Date: 20110103
  Transmission Date: 20120403
  Serious: Yes (Hospitalization)
  Sender: FDA-Public Use
  Company Number: US-ASTRAZENECA-2011SE00146

PATIENT
  Age: 44 Year
  Sex: Male
  Weight: 107 kg

DRUGS (2)
  1. SYMBICORT [Suspect]
     Dosage: THREE TO FOUR PUFFS, DAILY
     Route: 055
  2. SYMBICORT [Suspect]
     Dosage: 160/4.5 MCG, ONE PUFF DAILY
     Route: 055

REACTIONS (3)
  - INAPPROPRIATE SCHEDULE OF DRUG ADMINISTRATION [None]
  - SUPRAVENTRICULAR TACHYCARDIA [None]
  - LOWER RESPIRATORY TRACT INFECTION [None]
